FAERS Safety Report 6880473-5 (Version None)
Quarter: 2010Q3

REPORT INFORMATION
  Report Type: 
  Country: None (occurrence: None)
  Receive Date: 20100727
  Receipt Date: 20100715
  Transmission Date: 20110219
  Serious: Yes (Death, Hospitalization)
  Sender: FDA-Public Use
  Company Number: A0870642A

PATIENT
  Sex: Female

DRUGS (3)
  1. TREXIMET [Suspect]
     Indication: MIGRAINE
     Route: 048
     Dates: end: 20100529
  2. VALIUM [Concomitant]
  3. UNSPECIFIED MEDICATION [Concomitant]

REACTIONS (4)
  - CRYING [None]
  - DEATH [None]
  - DRUG INEFFECTIVE [None]
  - PAIN [None]
